FAERS Safety Report 20585961 (Version 1)
Quarter: 2022Q1

REPORT INFORMATION
  Report Type: Spontaneous
  Country: PL (occurrence: PL)
  Receive Date: 20220312
  Receipt Date: 20220312
  Transmission Date: 20220424
  Serious: Yes (Death)
  Sender: FDA-Public Use
  Company Number: PL-MALLINCKRODT-T202201014

PATIENT

DRUGS (4)
  1. UVADEX [Suspect]
     Active Substance: METHOXSALEN
     Indication: Graft versus host disease in gastrointestinal tract
     Dosage: UNK (EXTRACORPOREAL )
     Route: 050
  2. ETANERCEPT [Suspect]
     Active Substance: ETANERCEPT
     Indication: Graft versus host disease in gastrointestinal tract
     Dosage: UNK
     Route: 065
  3. BASILIXIMAB [Suspect]
     Active Substance: BASILIXIMAB
     Indication: Graft versus host disease in gastrointestinal tract
     Dosage: UNK
     Route: 065
  4. RUXOLITINIB [Suspect]
     Active Substance: RUXOLITINIB
     Indication: Graft versus host disease in gastrointestinal tract
     Dosage: UNK
     Route: 065

REACTIONS (3)
  - Neoplasm malignant [Fatal]
  - Disease recurrence [Fatal]
  - Drug ineffective for unapproved indication [Unknown]
